FAERS Safety Report 7997432-1 (Version None)
Quarter: 2011Q4

REPORT INFORMATION
  Report Type: 
  Country: None (occurrence: None)
  Receive Date: 20111221
  Receipt Date: 20111219
  Transmission Date: 20120403
  Serious: Yes (Death, Hospitalization)
  Sender: FDA-Public Use
  Company Number: ES-ROCHE-1023447

PATIENT
  Age: 87 Year
  Sex: Male

DRUGS (4)
  1. MABTHERA [Suspect]
     Indication: B-CELL LYMPHOMA
     Dosage: VIALS 500 MG/50 ML
     Route: 042
     Dates: start: 20110330, end: 20110823
  2. VINCRISTINE [Suspect]
     Indication: B-CELL LYMPHOMA
     Dosage: REPORTED AS- VINCRISTINE TEVA, 1 MG/ML INJECTION SOLUTION
     Route: 042
     Dates: start: 20110330, end: 20110823
  3. GENOXAL [Concomitant]
     Indication: B-CELL LYMPHOMA
     Dosage: FORM -1 G VIALS
     Route: 042
     Dates: start: 20110330, end: 20110823
  4. DOXORUBICIN HCL [Suspect]
     Indication: B-CELL LYMPHOMA
     Route: 042
     Dates: start: 20110330, end: 20110823

REACTIONS (2)
  - PYREXIA [None]
  - PANCYTOPENIA [None]
